FAERS Safety Report 8837902 (Version 2)
Quarter: 2014Q2

REPORT INFORMATION
  Report Type: Spontaneous
  Country: FR (occurrence: FR)
  Receive Date: 20121012
  Receipt Date: 20131018
  Transmission Date: 20141212
  Serious: Yes (Hospitalization, Other)
  Sender: FDA-Public Use
  Company Number: FR-PFIZER INC-2012246954

PATIENT
  Age: 58 Year
  Sex: Female

DRUGS (12)
  1. SOLU-MEDROL [Suspect]
     Indication: NAUSEA
     Dosage: (120 MG/2 ML) 1 DF, 1X/DAY
     Route: 042
     Dates: start: 20120308, end: 20120308
  2. CARBOPLATIN [Suspect]
     Indication: LARGE CELL LUNG CANCER RECURRENT
     Dosage: UNK
     Route: 042
     Dates: start: 20120308, end: 20120308
  3. ALIMTA [Suspect]
     Indication: LARGE CELL LUNG CANCER RECURRENT
     Dosage: UNK
     Route: 042
     Dates: start: 20120308, end: 20120308
  4. ZOPHREN [Suspect]
     Indication: NAUSEA
     Dosage: 1 DF, 1X/DAY
     Route: 042
  5. CARDENSIEL [Concomitant]
     Dosage: 5 MG
     Dates: start: 2007
  6. PREVISCAN [Concomitant]
     Dosage: 20 MG
     Dates: start: 2007, end: 20120323
  7. SPECIAFOLDINE [Concomitant]
     Dosage: 0.4 MG
  8. LIPANTHYL [Concomitant]
     Dosage: 160 MG
  9. NITRIDERM TTS [Concomitant]
     Dosage: 5 MG
  10. LEVOTHYROX [Concomitant]
     Dosage: 125 ?G
  11. EUPANTOL [Concomitant]
     Dosage: 20 MG
  12. IMOVANE [Concomitant]
     Dosage: UNK

REACTIONS (7)
  - Dermatitis exfoliative [Recovered/Resolved]
  - Rash pustular [Recovered/Resolved]
  - Pyrexia [Recovered/Resolved]
  - Drug eruption [Unknown]
  - Epidermal necrosis [Unknown]
  - Neutropenia [Unknown]
  - Thrombocytopenia [Unknown]
